FAERS Safety Report 8159343-0 (Version None)
Quarter: 2012Q1

REPORT INFORMATION
  Report Type: 
  Country: None (occurrence: None)
  Receive Date: 20120223
  Receipt Date: 20120215
  Transmission Date: 20120608
  Serious: Yes (Hospitalization, Other)
  Sender: FDA-Public Use
  Company Number: JP-PFIZER INC-2010158778

PATIENT
  Age: 68 Year
  Sex: Female
  Weight: 50 kg

DRUGS (4)
  1. MUCOSTA [Concomitant]
     Dosage: UNK
     Dates: start: 20100531
  2. LIMETHASONE [Concomitant]
     Dosage: UNK
     Dates: start: 20100607
  3. CELECOXIB [Concomitant]
     Dosage: UNK
     Dates: start: 20100531
  4. AZULFIDINE [Suspect]
     Indication: RHEUMATOID ARTHRITIS
     Dosage: UNK
     Route: 048
     Dates: start: 20100607

REACTIONS (4)
  - HUMAN HERPESVIRUS 6 INFECTION [None]
  - PANCREATITIS ACUTE [None]
  - TYPE 1 DIABETES MELLITUS [None]
  - DRUG RASH WITH EOSINOPHILIA AND SYSTEMIC SYMPTOMS [None]
